FAERS Safety Report 17294102 (Version 4)
Quarter: 2020Q1

REPORT INFORMATION
  Report Type: Spontaneous
  Country: US (occurrence: US)
  Receive Date: 20200121
  Receipt Date: 20200304
  Transmission Date: 20200409
  Serious: No
  Sender: FDA-Public Use
  Company Number: US-SA-2020SA007418

PATIENT
  Age: 55 Year
  Sex: Female

DRUGS (22)
  1. MYRBETRIC [Concomitant]
     Dosage: UNK
     Route: 048
  2. PREDNISONE. [Concomitant]
     Active Substance: PREDNISONE
     Dosage: 2 DF, BID
     Route: 048
     Dates: start: 20190422, end: 20190424
  3. XANAX [Concomitant]
     Active Substance: ALPRAZOLAM
     Dosage: 2 DF, QD
     Route: 048
  4. LEXAPRO [Concomitant]
     Active Substance: ESCITALOPRAM OXALATE
     Dosage: 2 DF, QD
     Route: 048
  5. DUPIXENT [Suspect]
     Active Substance: DUPILUMAB
     Indication: DERMATITIS ATOPIC
     Dosage: 300 MG, QOW
     Route: 058
     Dates: start: 20191010
  6. HYDROXYZINE HYDROCHLORIDE. [Concomitant]
     Active Substance: HYDROXYZINE HYDROCHLORIDE
     Dosage: UNK
     Route: 048
  7. EUCRISA [Concomitant]
     Active Substance: CRISABOROLE
     Indication: PRURITUS
     Dosage: APPLY BID TO ITCHY ECZEMA
     Route: 061
     Dates: start: 20180221
  8. PREDNISONE. [Concomitant]
     Active Substance: PREDNISONE
     Dosage: 1 DF, BID
     Route: 048
     Dates: start: 20190428, end: 20190430
  9. PRILOSEC [Concomitant]
     Active Substance: OMEPRAZOLE MAGNESIUM
     Dosage: 1 DF, QD
     Route: 048
  10. WELLBUTRIN [Concomitant]
     Active Substance: BUPROPION HYDROCHLORIDE
     Dosage: 1 DF, BID
     Route: 048
  11. ZYRTEC [Concomitant]
     Active Substance: CETIRIZINE HYDROCHLORIDE
     Dosage: 1 DF, QD
     Route: 048
  12. BETAMETHASONE DIPROPIONATE. [Concomitant]
     Active Substance: BETAMETHASONE DIPROPIONATE
     Indication: RASH
     Dosage: 1 APPLICATION BID TO RASH ON HAND *10 DAYS PER FLARE
     Route: 061
     Dates: start: 20170810
  13. CLINDAMYCIN PHOSPHATE. [Concomitant]
     Active Substance: CLINDAMYCIN PHOSPHATE
     Indication: SKIN IRRITATION
     Dosage: 1 APPLICATION QD
     Route: 061
     Dates: start: 20180221
  14. PROTOPIC [Concomitant]
     Active Substance: TACROLIMUS
     Indication: ECZEMA
     Dosage: UNK UNK, BID
     Route: 061
     Dates: start: 20190529
  15. PREDNISONE. [Concomitant]
     Active Substance: PREDNISONE
     Dosage: 1 DF, TID
     Route: 048
     Dates: start: 20190425, end: 20190427
  16. PREDNISONE. [Concomitant]
     Active Substance: PREDNISONE
     Dosage: 1 DF, QD
     Route: 048
     Dates: start: 201905
  17. FINACEA [Concomitant]
     Active Substance: AZELAIC ACID
     Dosage: 1 APPLICATION EVERY DAY TO FACE
     Route: 061
     Dates: start: 20170803
  18. FLUOCINONIDE. [Concomitant]
     Active Substance: FLUOCINONIDE
     Indication: RASH
     Dosage: 1 APPLICATION BID TO THICK RASH ON FOOT FOR 10 DAYS PER FLARE
     Route: 061
     Dates: start: 20161116
  19. TRIANEX [Concomitant]
     Active Substance: TRIAMCINOLONE ACETONIDE
     Dosage: ONE APPLICATION BID PER FLARE ON AFFECTED AREAS
     Route: 061
     Dates: start: 20180411
  20. EUCRISA [Concomitant]
     Active Substance: CRISABOROLE
     Indication: ECZEMA
  21. TRIAMCINOLONE ACETONIDE. [Concomitant]
     Active Substance: TRIAMCINOLONE ACETONIDE
     Indication: ECZEMA
     Dosage: 1 APPLICATION BID
     Route: 061
  22. BIOTIN [Concomitant]
     Active Substance: BIOTIN
     Dosage: 1 DF, QD
     Route: 048

REACTIONS (3)
  - Eczema [Not Recovered/Not Resolved]
  - Therapeutic response decreased [Unknown]
  - Unevaluable event [Unknown]
